FAERS Safety Report 6111751-5 (Version None)
Quarter: 2009Q1

REPORT INFORMATION
  Report Type: 
  Country: None (occurrence: None)
  Receive Date: 20090311
  Receipt Date: 20080415
  Transmission Date: 20090719
  Serious: No
  Sender: FDA-Public Use
  Company Number: US-TYCO HEALTHCARE/MALLINCKRODT-T200800682

PATIENT

DRUGS (4)
  1. RESTORIL [Suspect]
     Dosage: 15 MG, QD
     Route: 048
     Dates: start: 20030101
  2. IMITREX                            /01044801/ [Concomitant]
     Dosage: UNK, QD
     Route: 048
  3. TOPAMAX [Concomitant]
     Dosage: UNK, QD
     Route: 048
  4. AVAPRO [Concomitant]
     Dosage: UNK, QD
     Route: 048

REACTIONS (1)
  - DRUG SCREEN POSITIVE [None]
